FAERS Safety Report 12837234 (Version 1)
Quarter: 2016Q4

REPORT INFORMATION
  Report Type: Spontaneous
  Country: US (occurrence: US)
  Receive Date: 20161009
  Receipt Date: 20161009
  Transmission Date: 20170207
  Serious: Yes (Life-Threatening, Disabling, Other)
  Sender: FDA-Public Use
  Company Number: None

PATIENT
  Age: 75 Year
  Sex: Female
  Weight: 43.2 kg

DRUGS (3)
  1. NULYTELY [Suspect]
     Active Substance: POLYETHYLENE GLYCOL 3350\POTASSIUM CHLORIDE\SODIUM BICARBONATE\SODIUM CHLORIDE
     Indication: COLONOSCOPY
     Route: 048
     Dates: start: 20150707, end: 20150708
  2. PROPANALOL [Concomitant]
  3. SUPPLEMENTS AND ANYTHING NATURAL AS THE NULYTLEY [Concomitant]

REACTIONS (7)
  - Night sweats [None]
  - Osteoporosis [None]
  - Migraine [None]
  - Weight decreased [None]
  - Vomiting [None]
  - Meniere^s disease [None]
  - Depression [None]

NARRATIVE: CASE EVENT DATE: 20150707
